FAERS Safety Report 9013785 (Version 1)
Quarter: 2013Q1

REPORT INFORMATION
  Report Type: Spontaneous
  Country: US (occurrence: None)
  Receive Date: 20130108
  Receipt Date: 20130108
  Transmission Date: 20140127
  Serious: No
  Sender: FDA-Public Use
  Company Number: None

PATIENT
  Sex: Male
  Weight: 24.9 kg

DRUGS (1)
  1. MONTELUKAST [Suspect]
     Dosage: 5MG DAILY PO
     Route: 048

REACTIONS (7)
  - Product substitution issue [None]
  - Product taste abnormal [None]
  - Drug effect incomplete [None]
  - Rhinorrhoea [None]
  - Sneezing [None]
  - Cough [None]
  - Unevaluable event [None]
